FAERS Safety Report 5331585-9 (Version None)
Quarter: 2007Q2

REPORT INFORMATION
  Report Type: 
  Country: None (occurrence: None)
  Receive Date: 20070522
  Receipt Date: 20070511
  Transmission Date: 20071010
  Serious: Yes (Disabling, Other)
  Sender: FDA-Public Use
  Company Number: FR-PFIZER INC-2007032215

PATIENT
  Sex: Male

DRUGS (4)
  1. TAHOR [Suspect]
     Indication: PROPHYLAXIS
     Dosage: DAILY DOSE:80MG
     Dates: end: 20070417
  2. CLOPIDOGREL BISULFATE [Concomitant]
  3. ASPIRIN [Concomitant]
  4. ALL OTHER THERAPEUTIC PRODUCTS [Concomitant]

REACTIONS (6)
  - ABNORMAL FAECES [None]
  - CONSTIPATION [None]
  - DIPLOPIA [None]
  - EXTRAOCULAR MUSCLE PARESIS [None]
  - FATIGUE [None]
  - MOOD ALTERED [None]
